FAERS Safety Report 4845169-X (Version None)
Quarter: 2005Q4

REPORT INFORMATION
  Report Type: 
  Country: None (occurrence: None)
  Receive Date: 20051205
  Receipt Date: 20051128
  Transmission Date: 20060501
  Serious: Yes (Other)
  Sender: FDA-Public Use
  Company Number: ES-BRISTOL-MYERS SQUIBB COMPANY-13203583

PATIENT
  Age: 33 Year
  Sex: Female
  Weight: 51 kg

DRUGS (3)
  1. DIDANOSINE [Suspect]
  2. STAVUDINE [Suspect]
  3. LOPINAVIR + RITONAVIR [Suspect]

REACTIONS (1)
  - PANCREATITIS [None]
